FAERS Safety Report 4743963-7 (Version None)
Quarter: 2005Q3

REPORT INFORMATION
  Report Type: 
  Country: None (occurrence: None)
  Receive Date: 20050812
  Receipt Date: 20050804
  Transmission Date: 20060218
  Serious: Yes (Hospitalization)
  Sender: FDA-Public Use
  Company Number: FR-ROCHE-413049

PATIENT
  Age: 59 Year
  Sex: Male
  Weight: 88.9 kg

DRUGS (7)
  1. DACLIZUMAB [Suspect]
     Route: 042
     Dates: start: 20050322
  2. DACLIZUMAB [Suspect]
     Route: 042
     Dates: start: 20050405
  3. MYCOPHENOLATE MOFETIL [Suspect]
     Route: 048
     Dates: start: 20050322, end: 20050621
  4. MYCOPHENOLATE MOFETIL [Suspect]
     Route: 048
     Dates: start: 20050622, end: 20050704
  5. MYCOPHENOLATE MOFETIL [Suspect]
     Route: 048
     Dates: start: 20050713
  6. PREDNISONE [Suspect]
     Route: 048
     Dates: start: 20050322
  7. CYCLOSPORINE [Suspect]
     Route: 048
     Dates: start: 20050325

REACTIONS (2)
  - CYTOMEGALOVIRUS INFECTION [None]
  - THROMBOCYTOPENIA [None]
